FAERS Safety Report 22066266 (Version 1)
Quarter: 2023Q1

REPORT INFORMATION
  Report Type: Spontaneous
  Country: US (occurrence: None)
  Receive Date: 20230306
  Receipt Date: 20230306
  Transmission Date: 20230417
  Serious: Yes (Life-Threatening, Hospitalization, Disabling, Other)
  Sender: FDA-Public Use
  Company Number: None

PATIENT
  Age: 16 Year
  Sex: Male
  Weight: 49.5 kg

DRUGS (1)
  1. ISOTRETINOIN [Suspect]
     Active Substance: ISOTRETINOIN
     Indication: Acne
     Dosage: OTHER QUANTITY : 2 CAPSULE(S);?FREQUENCY : TWICE A DAY;?
     Route: 048
     Dates: start: 20220401, end: 20220905

REACTIONS (14)
  - Facial wasting [None]
  - Hair texture abnormal [None]
  - Hair injury [None]
  - Self-consciousness [None]
  - Depression [None]
  - Confusional state [None]
  - Suicidal ideation [None]
  - Fatigue [None]
  - Dyspnoea [None]
  - Loss of personal independence in daily activities [None]
  - Anaemia [None]
  - Pallor [None]
  - Dizziness [None]
  - Asthenia [None]

NARRATIVE: CASE EVENT DATE: 20220625
